FAERS Safety Report 10185152 (Version 3)
Quarter: 2014Q2

REPORT INFORMATION
  Report Type: Spontaneous
  Country: US (occurrence: US)
  Receive Date: 20140521
  Receipt Date: 20140626
  Transmission Date: 20141212
  Serious: Yes (Other)
  Sender: FDA-Public Use
  Company Number: US-JNJFOC-20140512152

PATIENT
  Age: 52 Year
  Sex: Male

DRUGS (3)
  1. SIMEPREVIR [Suspect]
     Indication: HEPATITIS C
     Route: 065
  2. SOVALDI [Suspect]
     Indication: HEPATITIS C
     Route: 065
  3. RIBAVIRIN [Suspect]
     Indication: HEPATITIS C
     Route: 065

REACTIONS (3)
  - Hepatitis C [Unknown]
  - Drug ineffective [Unknown]
  - Off label use [Unknown]
